FAERS Safety Report 12980129 (Version 1)
Quarter: 2016Q4

REPORT INFORMATION
  Report Type: Spontaneous
  Country: US (occurrence: US)
  Receive Date: 20161128
  Receipt Date: 20161128
  Transmission Date: 20170207
  Serious: No
  Sender: FDA-Public Use
  Company Number: US-AMGEN-USASP2016162066

PATIENT
  Age: 14 Year
  Sex: Male

DRUGS (5)
  1. ENBREL [Suspect]
     Active Substance: ETANERCEPT
     Indication: RHEUMATOID ARTHRITIS
     Dosage: 50 MG, QWK
     Route: 065
     Dates: start: 201610
  2. METHOTREXATE. [Concomitant]
     Active Substance: METHOTREXATE
     Dosage: UNK UNK, QWK
     Dates: start: 2015
  3. CLONIDINE. [Concomitant]
     Active Substance: CLONIDINE
     Dosage: UNK UNK, QD
  4. FOCALIN [Concomitant]
     Active Substance: DEXMETHYLPHENIDATE HYDROCHLORIDE
     Dosage: UNK UNK, QD
  5. ATOMOXETINE [Concomitant]
     Active Substance: ATOMOXETINE

REACTIONS (3)
  - Headache [Unknown]
  - Off label use [Unknown]
  - Fatigue [Unknown]
